FAERS Safety Report 6056244-9 (Version None)
Quarter: 2009Q1

REPORT INFORMATION
  Report Type: 
  Country: None (occurrence: None)
  Receive Date: 20090126
  Receipt Date: 20090126
  Transmission Date: 20090719
  Serious: No
  Sender: FDA-Public Use
  Company Number: None

PATIENT
  Age: 62 Year
  Sex: Male
  Weight: 108 kg

DRUGS (1)
  1. TRETINOIN [Suspect]
     Indication: ROSACEA
     Dosage: AT BEDTIME TOP
     Route: 061
     Dates: start: 20081224, end: 20081225

REACTIONS (6)
  - APPLICATION SITE BURN [None]
  - APPLICATION SITE RASH [None]
  - PRURITUS [None]
  - RASH [None]
  - SKIN EXFOLIATION [None]
  - URTICARIA [None]
